FAERS Safety Report 25807119 (Version 1)
Quarter: 2025Q3

REPORT INFORMATION
  Report Type: Spontaneous
  Country: US (occurrence: None)
  Receive Date: 20250915
  Receipt Date: 20250915
  Transmission Date: 20251021
  Serious: Yes (Death)
  Sender: FDA-CTU
  Company Number: None

PATIENT
  Age: 72 Year
  Sex: Female
  Weight: 145.15 kg

DRUGS (7)
  1. MOUNJARO [Suspect]
     Active Substance: TIRZEPATIDE
     Indication: Diabetes mellitus
     Dosage: FREQUENCY : DAILY;?
     Route: 042
     Dates: start: 20250620, end: 20250722
  2. FARXIGA [Concomitant]
     Active Substance: DAPAGLIFLOZIN PROPANEDIOL
  3. Medoxomil [Concomitant]
  4. METOPROLOL SUCCINATE [Concomitant]
     Active Substance: METOPROLOL SUCCINATE
  5. Duloxetine Hydro [Concomitant]
  6. PANTOPRAZOLE [Concomitant]
     Active Substance: PANTOPRAZOLE
  7. Stool Softner [Concomitant]

REACTIONS (5)
  - Weight decreased [None]
  - Decreased appetite [None]
  - Hypersomnia [None]
  - Diarrhoea [None]
  - Cardiac failure [None]
